FAERS Safety Report 24379880 (Version 1)
Quarter: 2024Q3

REPORT INFORMATION
  Report Type: Spontaneous
  Country: US (occurrence: US)
  Receive Date: 20240930
  Receipt Date: 20240930
  Transmission Date: 20241017
  Serious: No
  Sender: JOHNSON AND JOHNSON
  Company Number: US-JNJFOC-20240970045

PATIENT
  Sex: Male

DRUGS (1)
  1. PEPCID AC MAXIMUM STRENGTH [Suspect]
     Active Substance: FAMOTIDINE
     Indication: Dyspepsia
     Dosage: TOOK 1 TABLET
     Route: 048
     Dates: start: 20240923

REACTIONS (1)
  - Condition aggravated [Not Recovered/Not Resolved]
